FAERS Safety Report 5793054-1 (Version None)
Quarter: 2008Q2

REPORT INFORMATION
  Report Type: 
  Country: None (occurrence: None)
  Receive Date: 20080627
  Receipt Date: 20080617
  Transmission Date: 20081010
  Serious: Yes (Hospitalization)
  Sender: FDA-Public Use
  Company Number: FR-AVENTIS-200812307FR

PATIENT
  Age: 80 Year
  Sex: Female
  Weight: 45 kg

DRUGS (6)
  1. RODOGYL [Suspect]
     Indication: DENTAL CARE
     Route: 048
     Dates: start: 20080516, end: 20080518
  2. LEVOFLOXACIN [Suspect]
     Indication: URINARY TRACT INFECTION
     Route: 042
     Dates: start: 20080517, end: 20080518
  3. DAFLON                             /00426001/ [Concomitant]
  4. TENORMIN [Concomitant]
  5. TANAKAN                            /01003103/ [Concomitant]
  6. TRIVASTAL                          /00397201/ [Concomitant]

REACTIONS (1)
  - PANCYTOPENIA [None]
